FAERS Safety Report 7254099-8 (Version None)
Quarter: 2011Q1

REPORT INFORMATION
  Report Type: 
  Country: None (occurrence: None)
  Receive Date: 20110129
  Receipt Date: 20100423
  Transmission Date: 20110831
  Serious: No
  Sender: FDA-Public Use
  Company Number: US-ABBOTT-10P-163-0640393-00

PATIENT
  Sex: Female
  Weight: 72.186 kg

DRUGS (16)
  1. PENTASA [Concomitant]
     Indication: CROHN'S DISEASE
  2. GEODON [Concomitant]
     Indication: PSYCHOTIC DISORDER
  3. ALPRAZOLAM [Concomitant]
     Indication: ANXIETY
  4. LOPRIMIDE [Concomitant]
     Indication: CROHN'S DISEASE
  5. SINGULAIR [Concomitant]
  6. TRAZODONE HCL [Concomitant]
     Indication: DEPRESSION
  7. TOPIRAMATE [Concomitant]
     Indication: TREMOR
  8. PRILOSEC [Concomitant]
     Indication: NAUSEA
  9. PAXIL [Concomitant]
     Indication: DEPRESSION
  10. OMEPRAZOLE [Concomitant]
     Indication: GASTROOESOPHAGEAL REFLUX DISEASE
  11. LESCOL [Concomitant]
     Indication: BLOOD CHOLESTEROL INCREASED
  12. SINGULAIR [Concomitant]
     Indication: HYPERSENSITIVITY
  13. METHYLPHENIDATE [Concomitant]
     Indication: ATTENTION DEFICIT/HYPERACTIVITY DISORDER
  14. CLARINEX [Concomitant]
     Indication: HYPERSENSITIVITY
  15. HUMIRA [Suspect]
     Indication: CROHN'S DISEASE
     Dates: start: 20100414
  16. TRAZODONE HCL [Concomitant]
     Indication: INSOMNIA

REACTIONS (2)
  - ABNORMAL DREAMS [None]
  - NIGHTMARE [None]
